FAERS Safety Report 7373744-X (Version None)
Quarter: 2011Q1

REPORT INFORMATION
  Report Type: 
  Country: None (occurrence: None)
  Receive Date: 20110325
  Receipt Date: 20110316
  Transmission Date: 20110831
  Serious: Yes (Hospitalization)
  Sender: FDA-Public Use
  Company Number: US-JNJFOC-20070903915

PATIENT
  Sex: Female
  Weight: 76.4 kg

DRUGS (20)
  1. METHOTREXATE [Concomitant]
     Indication: RHEUMATOID ARTHRITIS
     Route: 048
  2. HYDROCODONE BITARTRATE [Concomitant]
     Indication: RHEUMATOID ARTHRITIS
     Route: 048
  3. GOLIMUMAB [Suspect]
     Dosage: AT WEEK 0
     Route: 058
  4. CARDIA XT [Concomitant]
     Indication: HYPERTENSION
     Route: 048
  5. ACTONEL [Concomitant]
     Indication: OSTEOPOROSIS
     Route: 048
  6. GOLIMUMAB [Suspect]
     Dosage: AT WEEK 12
     Route: 058
  7. GOLIMUMAB [Suspect]
     Dosage: AT WEEK 8
     Route: 058
  8. LEUCOVORIN [Concomitant]
     Indication: RHEUMATOID ARTHRITIS
     Route: 048
  9. GOLIMUMAB [Suspect]
     Indication: RHEUMATOID ARTHRITIS
     Dosage: AT WEEK 24
     Route: 058
  10. VALTREX [Concomitant]
     Route: 048
  11. GOLIMUMAB [Suspect]
     Dosage: AT WEEK 16
     Route: 058
  12. PREDNISONE [Concomitant]
     Indication: RHEUMATOID ARTHRITIS
     Route: 048
  13. HYDROCODONE BITARTRATE [Concomitant]
     Route: 048
  14. IRON [Concomitant]
     Indication: ANAEMIA OF CHRONIC DISEASE
     Route: 048
  15. GOLIMUMAB [Suspect]
     Dosage: AT WEEK 4
     Route: 058
  16. ZOLOFT [Concomitant]
     Indication: DEPRESSION
     Route: 048
  17. GOLIMUMAB [Suspect]
     Dosage: AT WEEK 20
     Route: 058
  18. PREVACID [Concomitant]
     Indication: DYSPEPSIA
     Route: 048
  19. CALCIUM [Concomitant]
     Route: 048
  20. AVINZA [Concomitant]
     Indication: RHEUMATOID ARTHRITIS
     Route: 048

REACTIONS (3)
  - GASTROENTERITIS [None]
  - PANCREATITIS [None]
  - DEEP VEIN THROMBOSIS [None]
